FAERS Safety Report 6061307-8 (Version None)
Quarter: 2009Q1

REPORT INFORMATION
  Report Type: 
  Country: None (occurrence: None)
  Receive Date: 20090130
  Receipt Date: 20090130
  Transmission Date: 20090719
  Serious: Yes (Other)
  Sender: FDA-Public Use
  Company Number: None

PATIENT
  Sex: Female
  Weight: 68.18 kg

DRUGS (2)
  1. HYDROCHLOROTHIAZIDE [Suspect]
     Dosage: 25MG TABLET 25 MG QD ORAL
     Route: 048
     Dates: start: 20081218, end: 20090129
  2. SYNTHROID [Concomitant]

REACTIONS (1)
  - ABDOMINAL PAIN [None]
